FAERS Safety Report 10093122 (Version 1)
Quarter: 2014Q2

REPORT INFORMATION
  Report Type: Spontaneous
  Country: US (occurrence: US)
  Receive Date: 20140421
  Receipt Date: 20140421
  Transmission Date: 20141212
  Serious: No
  Sender: FDA-Public Use
  Company Number: US-SA-2013SA099924

PATIENT
  Age: 63 Year
  Sex: Female

DRUGS (1)
  1. ALLEGRA [Suspect]
     Indication: HYPERSENSITIVITY
     Dosage: TAKEN FROM: 1 1/2 MONTH AGO.
     Route: 048

REACTIONS (3)
  - Ear disorder [Unknown]
  - Vertigo [Unknown]
  - Unevaluable event [Unknown]
